FAERS Safety Report 6809949-3 (Version None)
Quarter: 2010Q2

REPORT INFORMATION
  Report Type: 
  Country: None (occurrence: None)
  Receive Date: 20100630
  Receipt Date: 20100623
  Transmission Date: 20101027
  Serious: Yes (Hospitalization)
  Sender: FDA-Public Use
  Company Number: A0866867A

PATIENT
  Sex: Female
  Weight: 70 kg

DRUGS (12)
  1. VALTREX [Suspect]
     Indication: HERPES VIRUS INFECTION
     Dosage: 500MG TWICE PER DAY
     Route: 048
     Dates: start: 20100502, end: 20100506
  2. ASPIRIN [Concomitant]
     Dosage: 1TAB ALTERNATE DAYS
     Route: 048
     Dates: start: 20040101
  3. PLAVIX [Concomitant]
     Dosage: 1TAB PER DAY
     Route: 048
     Dates: start: 20040101, end: 20100608
  4. PANTOZOL [Concomitant]
     Dosage: 1TAB PER DAY
     Route: 048
     Dates: start: 20070101
  5. SYNTHROID [Concomitant]
     Dosage: 100MCG PER DAY
     Route: 048
  6. METFORMIN HCL [Concomitant]
     Dosage: 850MG THREE TIMES PER DAY
     Route: 048
  7. PRESSAT [Concomitant]
     Dosage: 1TAB PER DAY
     Route: 048
  8. MODURETIC 5-50 [Concomitant]
     Dosage: 25MG THREE TIMES PER WEEK
     Route: 048
  9. EZETIMIBE/SIMVASTATIN [Concomitant]
     Dosage: 1TAB PER DAY
     Route: 048
  10. INSULIN [Concomitant]
  11. DIAMICRON [Concomitant]
     Dosage: 30MG PER DAY
  12. SELOKEN [Concomitant]
     Dosage: 50MG PER DAY

REACTIONS (12)
  - CONTUSION [None]
  - DIZZINESS [None]
  - DRUG INEFFECTIVE [None]
  - GINGIVAL BLEEDING [None]
  - HERPES VIRUS INFECTION [None]
  - HYPERTENSIVE CRISIS [None]
  - MYALGIA [None]
  - PETECHIAE [None]
  - PRODUCT QUALITY ISSUE [None]
  - RASH ERYTHEMATOUS [None]
  - THROMBOCYTOPENIA [None]
  - THROMBOCYTOPENIC PURPURA [None]
